FAERS Safety Report 13873658 (Version 5)
Quarter: 2018Q2

REPORT INFORMATION
  Report Type: Report from Study
  Country: US (occurrence: US)
  Receive Date: 20170816
  Receipt Date: 20180621
  Transmission Date: 20180711
  Serious: Yes (Hospitalization, Other)
  Sender: FDA-Public Use
  Company Number: PHEH2017US025403

PATIENT
  Sex: Male

DRUGS (5)
  1. ENTRESTO [Suspect]
     Active Substance: SACUBITRIL\VALSARTAN
     Indication: CARDIAC FAILURE
     Dosage: 100 MG (49 MG OF SACUBITRIL AND 51 MG OF VALSARTAN), UNK
     Route: 048
  2. ENTRESTO [Suspect]
     Active Substance: SACUBITRIL\VALSARTAN
     Indication: ATRIAL FIBRILLATION
     Dosage: 50 UNK, UNK (24 MG SACUBITRIL AND  26MG VALSARTAN)
     Route: 065
  3. ENTRESTO [Suspect]
     Active Substance: SACUBITRIL\VALSARTAN
     Dosage: 100 MG, UNK (49MG SACUBITRIL AND 51MG VALSARTAN)
     Route: 065
  4. INSULIN [Suspect]
     Active Substance: INSULIN NOS
     Indication: PRODUCT USED FOR UNKNOWN INDICATION
     Dosage: 10 U, UNK
     Route: 065
  5. ENTRESTO [Suspect]
     Active Substance: SACUBITRIL\VALSARTAN
     Indication: HEART VALVE INCOMPETENCE
     Dosage: 1 DF (97 MG SACUBITRIL, 103 MG VALSARTAN), UNK
     Route: 048

REACTIONS (8)
  - Diabetes mellitus [Unknown]
  - Chest pain [Unknown]
  - Nerve compression [Unknown]
  - Drug ineffective [Unknown]
  - Post procedural haemorrhage [Unknown]
  - Blood glucose decreased [Unknown]
  - Fall [Unknown]
  - Skin cancer [Unknown]
